FAERS Safety Report 9863136 (Version 3)
Quarter: 2014Q1

REPORT INFORMATION
  Report Type: Report from Study
  Country: US (occurrence: US)
  Receive Date: 20140203
  Receipt Date: 20140212
  Transmission Date: 20141002
  Serious: Yes (Hospitalization)
  Sender: FDA-Public Use
  Company Number: US-ACTELION-A-US2013-91203

PATIENT
  Age: 52 Year
  Sex: Female

DRUGS (2)
  1. TRACLEER [Suspect]
     Indication: PULMONARY ARTERIAL HYPERTENSION
     Dosage: 125 MG, BID
     Route: 048
     Dates: start: 20131003
  2. XARELTO [Concomitant]
     Dosage: UNK
     Dates: end: 201401

REACTIONS (6)
  - Transfusion [Recovering/Resolving]
  - Haemoglobin decreased [Recovering/Resolving]
  - Cardiac failure congestive [Recovering/Resolving]
  - Fluid overload [Recovering/Resolving]
  - Weight increased [Recovering/Resolving]
  - Hypotension [Recovering/Resolving]
